FAERS Safety Report 12850278 (Version 2)
Quarter: 2016Q4

REPORT INFORMATION
  Report Type: Spontaneous
  Country: JP (occurrence: JP)
  Receive Date: 20161014
  Receipt Date: 20161211
  Transmission Date: 20170207
  Serious: Yes (Death, Other)
  Sender: FDA-Public Use
  Company Number: PHJP2016JP029195

PATIENT
  Sex: Male

DRUGS (1)
  1. EXJADE [Suspect]
     Active Substance: DEFERASIROX
     Indication: MYELODYSPLASTIC SYNDROME
     Dosage: UNK
     Route: 048

REACTIONS (4)
  - Organ failure [Fatal]
  - Disease progression [Unknown]
  - Iron overload [Unknown]
  - Myelodysplastic syndrome [Unknown]

NARRATIVE: CASE EVENT DATE: 201609
